FAERS Safety Report 7045047-4 (Version None)
Quarter: 2010Q4

REPORT INFORMATION
  Report Type: 
  Country: None (occurrence: None)
  Receive Date: 20101008
  Receipt Date: 20101008
  Transmission Date: 20110411
  Serious: Yes (Death)
  Sender: FDA-Public Use
  Company Number: None

PATIENT
  Age: 46 Year
  Sex: Male

DRUGS (1)
  1. ISOVUE-370 [Suspect]
     Indication: MYOCARDIAL INFARCTION
     Dosage: 100ML  1  IV
     Route: 042
     Dates: start: 20100909, end: 20100909

REACTIONS (3)
  - CARDIAC ARREST [None]
  - NAUSEA [None]
  - PRURITUS [None]
